FAERS Safety Report 17353660 (Version 2)
Quarter: 2020Q1

REPORT INFORMATION
  Report Type: Report from Study
  Country: US (occurrence: US)
  Receive Date: 20200131
  Receipt Date: 20200210
  Transmission Date: 20200409
  Serious: Yes (Hospitalization, Other)
  Sender: FDA-Public Use
  Company Number: US-ACCORD-170959

PATIENT
  Age: 6 Year
  Sex: Female

DRUGS (1)
  1. METHOTREXATE. [Suspect]
     Active Substance: METHOTREXATE
     Indication: ACUTE LYMPHOCYTIC LEUKAEMIA
     Dosage: MTX 15 MG IT,?MTX 5000 MG/M2?IV
     Route: 037

REACTIONS (5)
  - Ataxia [Recovered/Resolved]
  - Mental status changes [Recovered/Resolved]
  - Paraesthesia [Recovered/Resolved]
  - Stupor [Recovered/Resolved]
  - Asthenia [Recovered/Resolved]
